FAERS Safety Report 9132298 (Version 1)
Quarter: 2013Q1

REPORT INFORMATION
  Report Type: Spontaneous
  Country: US (occurrence: US)
  Receive Date: 20130120
  Receipt Date: 20130120
  Transmission Date: 20140127
  Serious: No
  Sender: FDA-Public Use
  Company Number: US-009507513-1301USA006141

PATIENT
  Age: 25 Year
  Sex: Female

DRUGS (1)
  1. SAPHRIS [Suspect]
     Dosage: UNK
     Dates: start: 20130108, end: 20130109

REACTIONS (4)
  - Muscle twitching [Unknown]
  - Poor quality sleep [Unknown]
  - Tension [Unknown]
  - Limb discomfort [Unknown]
